FAERS Safety Report 7495001-3 (Version None)
Quarter: 2011Q2

REPORT INFORMATION
  Report Type: 
  Country: None (occurrence: None)
  Receive Date: 20110520
  Receipt Date: 20110511
  Transmission Date: 20111010
  Serious: Yes (Congenital Anomaly)
  Sender: FDA-Public Use
  Company Number: US-GILEAD-2011-0035396

PATIENT
  Sex: Female
  Weight: 2.08 kg

DRUGS (6)
  1. TRUVADA [Suspect]
     Indication: HIV INFECTION
     Route: 064
     Dates: start: 20101021
  2. REYATAZ [Concomitant]
     Route: 064
     Dates: start: 20101021, end: 20110128
  3. NORVIR [Concomitant]
     Indication: HIV INFECTION
     Route: 064
     Dates: start: 20101021
  4. REYATAZ [Concomitant]
     Indication: HIV INFECTION
     Route: 064
     Dates: start: 20100129
  5. COMBIVIR [Concomitant]
     Indication: HIV INFECTION
     Route: 064
     Dates: start: 20100727, end: 20101020
  6. KALETRA [Concomitant]
     Indication: HIV INFECTION
     Route: 064
     Dates: start: 20100727, end: 20101020

REACTIONS (5)
  - ATRIAL SEPTAL DEFECT [None]
  - ULTRASOUND ANTENATAL SCREEN ABNORMAL [None]
  - LEFT ATRIAL DILATATION [None]
  - VENTRICULAR SEPTAL DEFECT [None]
  - PATENT DUCTUS ARTERIOSUS [None]
